FAERS Safety Report 7074047-3 (Version None)
Quarter: 2010Q4

REPORT INFORMATION
  Report Type: 
  Country: None (occurrence: None)
  Receive Date: 20101029
  Receipt Date: 20101021
  Transmission Date: 20110411
  Serious: Yes (Hospitalization)
  Sender: FDA-Public Use
  Company Number: CHPA2010US16757

PATIENT
  Age: 71 Year
  Sex: Male

DRUGS (12)
  1. PREVACID 24 HR [Suspect]
     Indication: OESOPHAGITIS
     Dosage: 15 MG, QD
     Route: 048
  2. LASIX [Concomitant]
  3. NORVASC [Concomitant]
  4. HYTRIN [Concomitant]
  5. K-DUR [Concomitant]
  6. LOPRESSOR [Concomitant]
     Indication: HYPERTENSION
     Route: 048
  7. ZOCOR [Concomitant]
  8. COUMADIN [Concomitant]
  9. PROZAC [Concomitant]
  10. LISINOPRIL [Concomitant]
  11. ASPIRIN [Concomitant]
  12. AMARYL [Concomitant]

REACTIONS (3)
  - AORTIC VALVE REPLACEMENT [None]
  - INTENTIONAL DRUG MISUSE [None]
  - OFF LABEL USE [None]
